FAERS Safety Report 21504936 (Version 1)
Quarter: 2022Q4

REPORT INFORMATION
  Report Type: Report from Study
  Country: US (occurrence: US)
  Receive Date: 20221025
  Receipt Date: 20221025
  Transmission Date: 20230113
  Serious: No
  Sender: FDA-Public Use
  Company Number: US-ABBVIE-4138814

PATIENT
  Sex: Male

DRUGS (2)
  1. VENCLEXTA [Suspect]
     Active Substance: VENETOCLAX
     Indication: Chronic lymphocytic leukaemia
     Route: 048
  2. Fentanol [Concomitant]
     Indication: Product used for unknown indication

REACTIONS (7)
  - Fatigue [Unknown]
  - White blood cell count increased [Unknown]
  - Vomiting [Unknown]
  - Sjogren^s syndrome [Unknown]
  - Chest pain [Unknown]
  - Pruritus [Unknown]
  - Hepatic enzyme increased [Unknown]
